FAERS Safety Report 4511998-5 (Version None)
Quarter: 2004Q4

REPORT INFORMATION
  Report Type: 
  Country: None (occurrence: None)
  Receive Date: 20041129
  Receipt Date: 20040517
  Transmission Date: 20050328
  Serious: No
  Sender: FDA-Public Use
  Company Number: US-BRISTOL-MYERS SQUIBB COMPANY-12591210

PATIENT
  Age: 39 Year
  Sex: Male
  Weight: 57 kg

DRUGS (7)
  1. SUSTIVA [Suspect]
     Indication: ACQUIRED IMMUNODEFICIENCY SYNDROME
     Route: 048
  2. ATAZANAVIR [Concomitant]
  3. RITONAVIR [Concomitant]
  4. BACTRIM [Concomitant]
     Dosage: 1 DOSAGE FORM= 1 TABLET
  5. SILDENAFIL [Concomitant]
  6. TRAZODONE HCL [Concomitant]
  7. TRIZIVIR [Concomitant]
     Dosage: DOSAGE FORM= 1 TABLET

REACTIONS (3)
  - ABNORMAL DREAMS [None]
  - INSOMNIA [None]
  - RESTLESSNESS [None]
